FAERS Safety Report 7291413-1 (Version None)
Quarter: 2011Q1

REPORT INFORMATION
  Report Type: 
  Country: None (occurrence: None)
  Receive Date: 20110214
  Receipt Date: 20110207
  Transmission Date: 20110831
  Serious: Yes (Hospitalization)
  Sender: FDA-Public Use
  Company Number: B0699244A

PATIENT
  Sex: Female

DRUGS (1)
  1. ROSIGLITAZONE MALEATE [Suspect]
     Indication: DIABETES MELLITUS
     Route: 048

REACTIONS (6)
  - ANXIETY [None]
  - EMOTIONAL DISORDER [None]
  - INJURY [None]
  - HYPERTENSION [None]
  - MENTAL DISORDER [None]
  - CARDIAC FAILURE CONGESTIVE [None]
